FAERS Safety Report 4475242-X (Version None)
Quarter: 2004Q4

REPORT INFORMATION
  Report Type: 
  Country: None (occurrence: None)
  Receive Date: 20041015
  Receipt Date: 20041015
  Transmission Date: 20050328
  Serious: Yes (Hospitalization)
  Sender: FDA-Public Use
  Company Number: None

PATIENT
  Age: 71 Year
  Sex: Male

DRUGS (3)
  1. ROSUVASTATIN 10 MG ASTRA-ZENECA [Suspect]
     Indication: DYSLIPIDAEMIA
     Dosage: 1 TAB DAILY ORAL
     Route: 048
     Dates: start: 20040723, end: 20040823
  2. PROTONIX [Concomitant]
  3. VIOXX [Concomitant]

REACTIONS (1)
  - PANCREATITIS [None]
